FAERS Safety Report 9715921 (Version 1)
Quarter: 2013Q4

REPORT INFORMATION
  Report Type: Report from Study
  Country: US (occurrence: US)
  Receive Date: 20131127
  Receipt Date: 20131127
  Transmission Date: 20140711
  Serious: Yes (Other)
  Sender: FDA-Public Use
  Company Number: US-ROCHE-1304765

PATIENT
  Age: 16 Year
  Sex: Male
  Weight: 87 kg

DRUGS (7)
  1. NUTROPIN AQ [Suspect]
     Indication: GROWTH HORMONE DEFICIENCY
     Route: 058
     Dates: start: 20130716
  2. NUTROPIN AQ [Suspect]
     Route: 058
     Dates: start: 20130814, end: 20131001
  3. NUTROPIN AQ [Suspect]
     Route: 058
     Dates: start: 20131001
  4. ABILIFY [Concomitant]
     Route: 048
  5. LEXAPRO [Concomitant]
     Route: 048
  6. ADDERALL XR [Concomitant]
     Route: 048
  7. FLAXSEED OIL [Concomitant]
     Route: 048

REACTIONS (4)
  - Insulin-like growth factor increased [Unknown]
  - Abnormal weight gain [Unknown]
  - Acanthosis nigricans [Unknown]
  - Acne [Unknown]
